FAERS Safety Report 25077989 (Version 1)
Quarter: 2025Q1

REPORT INFORMATION
  Report Type: Spontaneous
  Country: CN (occurrence: CN)
  Receive Date: 20250314
  Receipt Date: 20250314
  Transmission Date: 20250409
  Serious: Yes (Other)
  Sender: NOVARTIS
  Company Number: CN-002147023-NVSC2025CN041024

PATIENT
  Age: 47 Year
  Sex: Male

DRUGS (1)
  1. CARBAMAZEPINE [Suspect]
     Active Substance: CARBAMAZEPINE
     Indication: Epilepsy
     Route: 065

REACTIONS (12)
  - Disease recurrence [Unknown]
  - Hippocampal sclerosis [Unknown]
  - Cerebral atrophy [Unknown]
  - Temporal lobe epilepsy [Unknown]
  - Blood pressure abnormal [Unknown]
  - Breath sounds abnormal [Unknown]
  - Therapeutic response decreased [Unknown]
  - Hippocampal atrophy [Unknown]
  - Electroencephalogram abnormal [Unknown]
  - Illusion [Unknown]
  - Renal cyst [Unknown]
  - Benign prostatic hyperplasia [Unknown]
